FAERS Safety Report 5148003-6 (Version None)
Quarter: 2006Q4

REPORT INFORMATION
  Report Type: 
  Country: None (occurrence: None)
  Receive Date: 20061110
  Receipt Date: 20060530
  Transmission Date: 20070319
  Serious: Yes (Hospitalization, Other)
  Sender: FDA-Public Use
  Company Number: US-GLAXOSMITHKLINE-A0607465A

PATIENT
  Age: 36 Year
  Sex: Female
  Weight: 61.4 kg

DRUGS (6)
  1. LAMICTAL [Suspect]
     Indication: BIPOLAR DISORDER
     Dosage: 200MG PER DAY
     Route: 048
     Dates: start: 20050101, end: 20060501
  2. WELLBUTRIN SR [Suspect]
     Indication: DRUG USE FOR UNKNOWN INDICATION
     Dosage: 75MG PER DAY
     Route: 048
     Dates: start: 20060105
  3. SEROQUEL [Suspect]
     Indication: DRUG USE FOR UNKNOWN INDICATION
     Dosage: 50MG AT NIGHT
     Route: 048
     Dates: start: 20060320
  4. PROZAC [Concomitant]
     Dosage: 20MG PER DAY
     Route: 048
     Dates: start: 20051202
  5. ELAVIL [Concomitant]
     Dosage: 10MG PER DAY
     Route: 048
     Dates: start: 20060306
  6. BIRTH CONTROL PILLS [Concomitant]

REACTIONS (5)
  - BLOOD TEST ABNORMAL [None]
  - CONVULSION [None]
  - DRUG ERUPTION [None]
  - DRUG INTERACTION [None]
  - RASH MACULO-PAPULAR [None]
